FAERS Safety Report 6274189-6 (Version None)
Quarter: 2009Q3

REPORT INFORMATION
  Report Type: 
  Country: None (occurrence: None)
  Receive Date: 20090720
  Receipt Date: 20090708
  Transmission Date: 20100115
  Serious: Yes (Other)
  Sender: FDA-Public Use
  Company Number: US-WATSON-2009-05367

PATIENT
  Age: 49 Year
  Sex: Female

DRUGS (4)
  1. FENTANYL-50 [Suspect]
     Indication: BACK PAIN
     Dosage: APPLY 1 PATCH, Q 48 HOURS
     Route: 062
     Dates: start: 20090501
  2. FENTANYL-50 [Suspect]
     Dosage: APPLY 1 PATCH, Q 48 HOURS
     Route: 062
     Dates: start: 20090301, end: 20090501
  3. FENTANYL-100 [Suspect]
     Indication: BACK PAIN
     Dosage: APPLY 1 PATCH, Q 48 HOURS
     Route: 062
     Dates: start: 20090501
  4. FENTANYL-100 [Suspect]
     Dosage: APPLY 1 PATCH, Q 48 HOURS
     Route: 062
     Dates: start: 20090301, end: 20090501

REACTIONS (2)
  - AMNESIA [None]
  - LOSS OF CONSCIOUSNESS [None]
